FAERS Safety Report 8932578 (Version 1)
Quarter: 2012Q4

REPORT INFORMATION
  Report Type: Spontaneous
  Country: TR (occurrence: None)
  Receive Date: 20121119
  Receipt Date: 20121119
  Transmission Date: 20130627
  Serious: Yes (Other)
  Sender: FDA-Public Use
  Company Number: VAL_00978_2012

PATIENT
  Age: 9 Year
  Sex: Male
  Weight: 57.4 kg

DRUGS (1)
  1. CARBAMAZEPINE [Suspect]
     Dosage: (DF)

REACTIONS (3)
  - Dexamethasone suppression test positive [None]
  - Cushing^s syndrome [None]
  - Drug interaction [None]
